FAERS Safety Report 26107609 (Version 2)
Quarter: 2025Q4

REPORT INFORMATION
  Report Type: Spontaneous
  Country: JP (occurrence: JP)
  Receive Date: 20251201
  Receipt Date: 20251212
  Transmission Date: 20260118
  Serious: Yes (Hospitalization)
  Sender: NOVO NORDISK
  Company Number: JP-NOVOPROD-1574319

PATIENT
  Age: 70 Year
  Sex: Female

DRUGS (2)
  1. RYBELSUS [Suspect]
     Active Substance: SEMAGLUTIDE
     Dosage: 3 MG, QD(REINITIATED)
     Route: 048
  2. RYBELSUS [Suspect]
     Active Substance: SEMAGLUTIDE
     Indication: Diabetes mellitus
     Dosage: 7 MG, QD
     Route: 048

REACTIONS (1)
  - Hospitalisation [Unknown]
